FAERS Safety Report 11423821 (Version 1)
Quarter: 2015Q3

REPORT INFORMATION
  Report Type: Spontaneous
  Country: US (occurrence: US)
  Receive Date: 20150827
  Receipt Date: 20150827
  Transmission Date: 20151125
  Serious: No
  Sender: FDA-Public Use
  Company Number: US-JNJFOC-20150513017

PATIENT
  Sex: Male

DRUGS (1)
  1. MOTRIN IB [Suspect]
     Active Substance: IBUPROFEN
     Indication: PAIN
     Dosage: START DATE:18-MAY-2015??INTERVAL: TWICE
     Route: 048
     Dates: start: 20150518

REACTIONS (1)
  - Inappropriate schedule of drug administration [Unknown]
